FAERS Safety Report 5304672-9 (Version None)
Quarter: 2007Q2

REPORT INFORMATION
  Report Type: 
  Country: None (occurrence: None)
  Receive Date: 20070416
  Receipt Date: 20070402
  Transmission Date: 20071010
  Serious: Yes (Hospitalization)
  Sender: FDA-Public Use
  Company Number: L07-TUR-01499-01

PATIENT
  Age: 55 Year
  Sex: Male

DRUGS (1)
  1. THEOPHYLLINE [Suspect]

REACTIONS (7)
  - CONVULSION [None]
  - COUGH [None]
  - DRUG TOXICITY [None]
  - FLUSHING [None]
  - INCORRECT DOSE ADMINISTERED [None]
  - PLASMAPHERESIS [None]
  - TACHYCARDIA [None]
